FAERS Safety Report 7880987-5 (Version None)
Quarter: 2011Q4

REPORT INFORMATION
  Report Type: 
  Country: None (occurrence: None)
  Receive Date: 20111101
  Receipt Date: 20111024
  Transmission Date: 20120403
  Serious: Yes (Hospitalization, Disabling, Other)
  Sender: FDA-Public Use
  Company Number: US-MERCK-1011USA00404

PATIENT
  Age: 65 Year
  Sex: Female
  Weight: 67 kg

DRUGS (10)
  1. VITAMINS (UNSPECIFIED) [Concomitant]
     Route: 065
  2. CYMBALTA [Concomitant]
     Indication: DEPRESSION
     Route: 065
     Dates: start: 20070101
  3. FOSAMAX [Suspect]
     Route: 048
     Dates: start: 20080901, end: 20091107
  4. ALDACTAZIDE [Concomitant]
     Route: 065
  5. OMEGA-3 MARINE TRIGLYCERIDES [Concomitant]
     Route: 065
  6. ALENDRONATE SODIUM [Suspect]
     Route: 048
     Dates: start: 20090127, end: 20090611
  7. VAGIFEM [Concomitant]
     Route: 065
  8. FOSAMAX [Suspect]
     Route: 065
     Dates: start: 20080908, end: 20100101
  9. FOSAMAX [Suspect]
     Indication: OSTEOPENIA
     Route: 048
     Dates: start: 20050601, end: 20080601
  10. BONIVA [Suspect]
     Indication: OSTEOPENIA
     Route: 048
     Dates: start: 20080520, end: 20080801

REACTIONS (48)
  - IMPAIRED HEALING [None]
  - ARTHRITIS [None]
  - CYST [None]
  - ABASIA [None]
  - CARDIAC FAILURE [None]
  - OSTEOMA [None]
  - LOW TURNOVER OSTEOPATHY [None]
  - GAIT DISTURBANCE [None]
  - CARTILAGE INJURY [None]
  - BONE DENSITY DECREASED [None]
  - SCIATICA [None]
  - MUSCULOSKELETAL PAIN [None]
  - GASTROOESOPHAGEAL REFLUX DISEASE [None]
  - ARTHROPATHY [None]
  - EMOTIONAL DISTRESS [None]
  - STRESS FRACTURE [None]
  - PATHOLOGICAL FRACTURE [None]
  - MUSCLE RUPTURE [None]
  - BONE CYST [None]
  - FALL [None]
  - FOOT FRACTURE [None]
  - RADICULAR PAIN [None]
  - PIRIFORMIS SYNDROME [None]
  - ARTHRALGIA [None]
  - METATARSALGIA [None]
  - JOINT INSTABILITY [None]
  - OEDEMA PERIPHERAL [None]
  - ALCOHOL USE [None]
  - OSTEOARTHRITIS [None]
  - TENDON INJURY [None]
  - FEMUR FRACTURE [None]
  - PAIN IN EXTREMITY [None]
  - MUSCULAR WEAKNESS [None]
  - JOINT INJURY [None]
  - LIGAMENT INJURY [None]
  - DEVICE DISLOCATION [None]
  - LIGAMENT DISORDER [None]
  - OSTEOPOROSIS [None]
  - LOOSE BODY IN JOINT [None]
  - FOOT DEFORMITY [None]
  - COMPRESSION FRACTURE [None]
  - IMPAIRED WORK ABILITY [None]
  - MUSCLE STRAIN [None]
  - TENDON RUPTURE [None]
  - BACK PAIN [None]
  - PAIN [None]
  - MULTIPLE INJURIES [None]
  - OSTEOSCLEROSIS [None]
